FAERS Safety Report 6150344-0 (Version None)
Quarter: 2009Q2

REPORT INFORMATION
  Report Type: 
  Country: None (occurrence: None)
  Receive Date: 20090408
  Receipt Date: 20090408
  Transmission Date: 20091009
  Serious: Yes (Hospitalization)
  Sender: FDA-Public Use
  Company Number: None

PATIENT
  Age: 61 Year
  Sex: Male
  Weight: 145.6 kg

DRUGS (2)
  1. FUROSEMIDE [Suspect]
     Indication: HYPERTENSION
     Dosage: 40 MG EVERY DAY PO
     Route: 048
     Dates: start: 20090109, end: 20090331
  2. TRIAMTERENE AND HYDROCHLOROTHIAZIDE [Suspect]
     Indication: HYPERTENSION
     Dosage: ONE-HALF TAB EVERY DAY PO
     Route: 048
     Dates: start: 20090129, end: 20090331

REACTIONS (3)
  - HYPERKALAEMIA [None]
  - HYPOTENSION [None]
  - RENAL FAILURE ACUTE [None]
